FAERS Safety Report 14427615 (Version 1)
Quarter: 2018Q1

REPORT INFORMATION
  Report Type: Spontaneous
  Country: US (occurrence: US)
  Receive Date: 20180123
  Receipt Date: 20180123
  Transmission Date: 20180509
  Serious: Yes (Other)
  Sender: FDA-Public Use
  Company Number: US-ALLERGAN-1802860US

PATIENT
  Sex: Female

DRUGS (1)
  1. REFRESH CLASSIC [Suspect]
     Active Substance: POLYVINYL ALCOHOL\POVIDONE
     Indication: DRY EYE
     Dosage: UNK
     Route: 047

REACTIONS (5)
  - Surgery [Unknown]
  - Photophobia [Unknown]
  - Dry eye [Unknown]
  - Expired product administered [Unknown]
  - Eye irritation [Unknown]
